FAERS Safety Report 24322774 (Version 1)
Quarter: 2024Q3

REPORT INFORMATION
  Report Type: Spontaneous
  Country: US (occurrence: None)
  Receive Date: 20240913
  Receipt Date: 20240913
  Transmission Date: 20241016
  Serious: Yes (Hospitalization)
  Sender: Public
  Company Number: None

PATIENT
  Age: 26 Year
  Sex: Female

DRUGS (1)
  1. DUPIXENT [Suspect]
     Active Substance: DUPILUMAB
     Indication: Asthma
     Dosage: FREQUENCY : EVERY OTHER WEEK;?
     Route: 058

REACTIONS (5)
  - Syncope [None]
  - Dizziness [None]
  - Hypoaesthesia [None]
  - Carpal tunnel syndrome [None]
  - Muscle twitching [None]

NARRATIVE: CASE EVENT DATE: 20210906
